FAERS Safety Report 9852758 (Version 1)
Quarter: 2014Q1

REPORT INFORMATION
  Report Type: Spontaneous
  Country: GB (occurrence: None)
  Receive Date: 20140127
  Receipt Date: 20140127
  Transmission Date: 20141002
  Serious: Yes (Other)
  Sender: FDA-Public Use
  Company Number: 2014R1-77293

PATIENT
  Age: 76 Year
  Sex: Male
  Weight: 82.6 kg

DRUGS (3)
  1. CIPROFLOXACIN (CIPROFLOXACIN ) [Suspect]
     Indication: URINARY TRACT INFECTION
     Route: 048
  2. AMLODIPINE (AMLODIPINE) UNKNOWN [Concomitant]
  3. BENDROFLUMETHIAZIDE (BENDROFLUMETHIAZIDE) UNKNOWN [Concomitant]

REACTIONS (2)
  - Neck pain [None]
  - Muscle spasms [None]
